FAERS Safety Report 21402678 (Version 4)
Quarter: 2023Q1

REPORT INFORMATION
  Report Type: Report from Study
  Country: ES (occurrence: ES)
  Receive Date: 20221003
  Receipt Date: 20230111
  Transmission Date: 20230417
  Serious: Yes (Hospitalization)
  Sender: FDA-Public Use
  Company Number: ES-GILEAD-2022-0584855

PATIENT
  Age: 7 Year
  Sex: Male
  Weight: 25.2 kg

DRUGS (6)
  1. BREXUCABTAGENE AUTOLEUCEL [Suspect]
     Active Substance: BREXUCABTAGENE AUTOLEUCEL
     Indication: B-cell type acute leukaemia
     Dosage: 40 ML, ONCE
     Route: 042
     Dates: start: 20220530, end: 20220530
  2. FLUDARABINE [Suspect]
     Active Substance: FLUDARABINE PHOSPHATE
     Indication: Cardiovascular deconditioning
     Dosage: 22.5 MG
     Route: 042
     Dates: start: 20220526, end: 20220528
  3. CYCLOPHOSPHAMIDE [Suspect]
     Active Substance: CYCLOPHOSPHAMIDE
     Indication: Bone marrow conditioning regimen
     Dosage: 800 MG
     Route: 042
     Dates: start: 20220528, end: 20220528
  4. ACYCLOVIR [Concomitant]
     Active Substance: ACYCLOVIR
     Dosage: INCREASED DOSE
     Dates: start: 20220609
  5. LEVETIRACETAM [Concomitant]
     Active Substance: LEVETIRACETAM
     Dosage: 100 MG, BID
     Dates: start: 20220523, end: 20220530
  6. LEVETIRACETAM [Concomitant]
     Active Substance: LEVETIRACETAM
     Dosage: 20 MG/KG, QD
     Dates: start: 20220530

REACTIONS (11)
  - Facial nerve disorder [Recovered/Resolved]
  - Cytokine release syndrome [Recovered/Resolved]
  - Hypotension [Recovered/Resolved]
  - Tachycardia [Recovered/Resolved]
  - Bradyphrenia [Recovered/Resolved]
  - Aphasia [Recovered/Resolved]
  - Disorientation [Recovered/Resolved]
  - Hallucination, visual [Recovered/Resolved]
  - Irritability [Recovered/Resolved]
  - Pyrexia [Recovered/Resolved]
  - Coagulopathy [Recovered/Resolved]

NARRATIVE: CASE EVENT DATE: 20220606
